FAERS Safety Report 5731577-1 (Version None)
Quarter: 2008Q2

REPORT INFORMATION
  Report Type: 
  Country: None (occurrence: None)
  Receive Date: 20080506
  Receipt Date: 20080506
  Transmission Date: 20081010
  Serious: Yes (Death)
  Sender: FDA-Public Use
  Company Number: None

PATIENT
  Age: 71 Year
  Sex: Female
  Weight: 52.6173 kg

DRUGS (1)
  1. DIGITEX .125MG MYLANBERTEX [Suspect]
     Indication: ATRIAL FIBRILLATION
     Dosage: ONE DAILY PO
     Route: 048
     Dates: start: 20080223, end: 20080324

REACTIONS (1)
  - PHARMACEUTICAL PRODUCT COMPLAINT [None]
